FAERS Safety Report 9149242 (Version 1)
Quarter: 2013Q1

REPORT INFORMATION
  Report Type: Spontaneous
  Country: GB (occurrence: None)
  Receive Date: 20130131
  Receipt Date: 20130131
  Transmission Date: 20140127
  Serious: Yes (Other)
  Sender: FDA-Public Use
  Company Number: 2013-00109

PATIENT
  Age: 63 Year
  Sex: Female

DRUGS (2)
  1. LISINOPRIL (LISINOPRIL DIHYDRATE) (UNKNOWN [Suspect]
     Indication: HYPERTENSION
     Route: 048
     Dates: end: 20130107
  2. PARACETAMOL [Concomitant]

REACTIONS (3)
  - Pruritus [None]
  - Skin mass [None]
  - Rash [None]
